FAERS Safety Report 7229904-1 (Version None)
Quarter: 2011Q1

REPORT INFORMATION
  Report Type: 
  Country: None (occurrence: None)
  Receive Date: 20110117
  Receipt Date: 20110111
  Transmission Date: 20110831
  Serious: Yes (Hospitalization)
  Sender: FDA-Public Use
  Company Number: DE-BRACCO-000775

PATIENT
  Sex: Female

DRUGS (1)
  1. PROHANCE [Suspect]
     Indication: NUCLEAR MAGNETIC RESONANCE IMAGING
     Dates: start: 20101229, end: 20101229

REACTIONS (5)
  - NASAL CONGESTION [None]
  - THROAT TIGHTNESS [None]
  - COUGH [None]
  - THROAT IRRITATION [None]
  - STRIDOR [None]
